FAERS Safety Report 19671040 (Version 8)
Quarter: 2023Q4

REPORT INFORMATION
  Report Type: Report from Study
  Country: CL (occurrence: CL)
  Receive Date: 20210806
  Receipt Date: 20231023
  Transmission Date: 20240110
  Serious: Yes (Other)
  Sender: FDA-Public Use
  Company Number: CL-TAKEDA-2021TUS013868

PATIENT
  Age: 8 Year
  Sex: Male
  Weight: 30 kg

DRUGS (7)
  1. IDURSULFASE [Suspect]
     Active Substance: IDURSULFASE
     Indication: Mucopolysaccharidosis II
     Dosage: 6 MILLIGRAM, 1/WEEK
     Route: 042
     Dates: start: 20210222
  2. IDURSULFASE [Suspect]
     Active Substance: IDURSULFASE
     Indication: Enzyme supplementation
     Dosage: UNK UNK, 1/WEEK
     Route: 065
  3. IDURSULFASE [Suspect]
     Active Substance: IDURSULFASE
     Dosage: UNK UNK, 1/WEEK
     Route: 042
  4. IDURSULFASE [Suspect]
     Active Substance: IDURSULFASE
     Dosage: UNK UNK, 1/WEEK
     Route: 042
  5. IDURSULFASE [Suspect]
     Active Substance: IDURSULFASE
     Dosage: UNK UNK, 1/WEEK
     Route: 042
  6. IDURSULFASE [Suspect]
     Active Substance: IDURSULFASE
     Dosage: UNK, 1/WEEK
     Route: 042
  7. IDURSULFASE [Suspect]
     Active Substance: IDURSULFASE
     Dosage: UNK UNK, 1/WEEK
     Route: 042

REACTIONS (22)
  - Bronchial obstruction [Recovered/Resolved]
  - Umbilical hernia [Recovering/Resolving]
  - Inguinal hernia [Recovering/Resolving]
  - Nasal congestion [Recovered/Resolved]
  - Pruritus allergic [Recovering/Resolving]
  - COVID-19 [Recovering/Resolving]
  - Irritability [Recovering/Resolving]
  - Odynophagia [Recovered/Resolved]
  - Ear pain [Recovered/Resolved]
  - Pain [Recovering/Resolving]
  - Eye inflammation [Recovering/Resolving]
  - Fall [Recovered/Resolved]
  - Face injury [Recovering/Resolving]
  - Rhinorrhoea [Recovering/Resolving]
  - Viral rash [Recovered/Resolved]
  - Bronchitis [Recovering/Resolving]
  - Catarrh [Unknown]
  - Respiratory symptom [Recovered/Resolved]
  - Productive cough [Recovered/Resolved]
  - Pruritus [Recovering/Resolving]
  - Pyrexia [Recovered/Resolved]
  - Cough [Recovering/Resolving]

NARRATIVE: CASE EVENT DATE: 20210222
